FAERS Safety Report 7689090-0 (Version None)
Quarter: 2011Q3

REPORT INFORMATION
  Report Type: 
  Country: None (occurrence: None)
  Receive Date: 20110817
  Receipt Date: 20110815
  Transmission Date: 20111222
  Serious: Yes (Disabling, Other)
  Sender: FDA-Public Use
  Company Number: US-MERCK-0904USA01370

PATIENT
  Age: 65 Year
  Sex: Female
  Weight: 59 kg

DRUGS (6)
  1. FOSAMAX [Suspect]
     Indication: OSTEOPOROSIS
     Route: 048
     Dates: start: 20040323, end: 20060201
  2. FOSAMAX [Suspect]
     Indication: OSTEOPOROSIS PROPHYLAXIS
     Route: 048
     Dates: start: 20040323, end: 20060201
  3. FOSAMAX PLUS D [Suspect]
     Indication: OSTEOPOROSIS PROPHYLAXIS
     Route: 048
     Dates: start: 20070410, end: 20070625
  4. FOSAMAX PLUS D [Suspect]
     Indication: OSTEOPOROSIS
     Route: 048
     Dates: start: 20070410, end: 20070625
  5. FOSAMAX [Suspect]
     Route: 048
     Dates: start: 20060601, end: 20070409
  6. FOSAMAX [Suspect]
     Route: 048
     Dates: start: 20060601, end: 20070409

REACTIONS (38)
  - BONE DISORDER [None]
  - BUNION [None]
  - EAR PAIN [None]
  - VESTIBULAR DISORDER [None]
  - TOOTH INFECTION [None]
  - FALL [None]
  - FOOT FRACTURE [None]
  - RADICULOPATHY [None]
  - DENTAL FISTULA [None]
  - BONE LOSS [None]
  - BONE DENSITY INCREASED [None]
  - BACK DISORDER [None]
  - NEUROPATHY PERIPHERAL [None]
  - PIRIFORMIS SYNDROME [None]
  - PAIN IN EXTREMITY [None]
  - OSTEONECROSIS OF JAW [None]
  - NEUROMA [None]
  - INCREASED TENDENCY TO BRUISE [None]
  - EXOSTOSIS [None]
  - TENDINOUS CONTRACTURE [None]
  - SKIN LESION [None]
  - ARACHNOID CYST [None]
  - FACE INJURY [None]
  - FOOT DEFORMITY [None]
  - SINUS DISORDER [None]
  - SCIATICA [None]
  - OSCILLOPSIA [None]
  - OEDEMA [None]
  - CONCUSSION [None]
  - OSTEOMYELITIS [None]
  - BALANCE DISORDER [None]
  - INTERVERTEBRAL DISC DEGENERATION [None]
  - FLUID RETENTION [None]
  - BACK PAIN [None]
  - HEAD INJURY [None]
  - BLOOD GLUCOSE DECREASED [None]
  - VERTIGO [None]
  - VERTIGO POSITIONAL [None]
